FAERS Safety Report 16466951 (Version 4)
Quarter: 2019Q3

REPORT INFORMATION
  Report Type: Report from Study
  Country: None (occurrence: BR)
  Receive Date: 20190624
  Receipt Date: 20190919
  Transmission Date: 20191004
  Serious: Yes (Hospitalization, Disabling, Other)
  Sender: FDA-Public Use
  Company Number: BR-ABBVIE-19K-020-2824657-00

PATIENT
  Age: 67 Year
  Sex: Male

DRUGS (8)
  1. HUMIRA [Suspect]
     Active Substance: ADALIMUMAB
     Indication: RHEUMATOID ARTHRITIS
     Route: 058
     Dates: end: 201812
  2. HUMIRA [Suspect]
     Active Substance: ADALIMUMAB
     Route: 058
     Dates: start: 20190725
  3. ESCITALOPRAM [Concomitant]
     Active Substance: ESCITALOPRAM OXALATE
     Indication: NERVOUSNESS
  4. ESCITALOPRAM [Concomitant]
     Active Substance: ESCITALOPRAM OXALATE
     Indication: ANXIETY
  5. QUETIAPINE. [Concomitant]
     Active Substance: QUETIAPINE
     Indication: MEMORY IMPAIRMENT
  6. ALPRAZOLAM. [Concomitant]
     Active Substance: ALPRAZOLAM
     Indication: SLEEP DISORDER THERAPY
  7. OXYCODONE [Concomitant]
     Active Substance: OXYCODONE
     Indication: PAIN
  8. PREDNISONE. [Concomitant]
     Active Substance: PREDNISONE
     Indication: PAIN

REACTIONS (30)
  - Hypertension [Unknown]
  - Wheelchair user [Unknown]
  - Myocardial infarction [Unknown]
  - Pleural effusion [Recovered/Resolved]
  - Daydreaming [Unknown]
  - Vein rupture [Recovered/Resolved]
  - Epistaxis [Recovered/Resolved]
  - Impaired work ability [Unknown]
  - Pleural effusion [Unknown]
  - Anxiety [Unknown]
  - Pain [Unknown]
  - Renal disorder [Recovered/Resolved]
  - Lung disorder [Unknown]
  - Cardiac disorder [Recovered/Resolved]
  - Rheumatoid arthritis [Unknown]
  - Memory impairment [Unknown]
  - Sepsis [Recovered/Resolved]
  - Nervousness [Unknown]
  - Unevaluable event [Unknown]
  - Haemoglobin abnormal [Unknown]
  - Gait inability [Unknown]
  - Procedural haemorrhage [Unknown]
  - Cardiac arrest [Unknown]
  - Mass [Unknown]
  - Fistula [Recovered/Resolved]
  - Intracardiac thrombus [Recovered/Resolved]
  - Body height decreased [Unknown]
  - Restlessness [Unknown]
  - Gait disturbance [Unknown]
  - Dysstasia [Unknown]

NARRATIVE: CASE EVENT DATE: 2015
